FAERS Safety Report 13133401 (Version 2)
Quarter: 2017Q2

REPORT INFORMATION
  Report Type: Spontaneous
  Country: None (occurrence: US)
  Receive Date: 20170120
  Receipt Date: 20170410
  Transmission Date: 20170830
  Serious: No
  Sender: FDA-Public Use
  Company Number: US-VELOXIS PHARMACEUTICALS-1062201

PATIENT
  Age: 67 Year
  Sex: Male
  Weight: 73 kg

DRUGS (17)
  1. ENVARSUS XR [Suspect]
     Active Substance: TACROLIMUS
     Indication: RENAL TRANSPLANT
     Route: 048
     Dates: start: 20161224, end: 20161224
  2. HEPARIN [Concomitant]
     Active Substance: HEPARIN SODIUM
  3. CIPRO [Concomitant]
     Active Substance: CIPROFLOXACIN HYDROCHLORIDE
  4. MEPRON [Concomitant]
     Active Substance: ATOVAQUONE
  5. ABACAVIR SULFATE. [Concomitant]
     Active Substance: ABACAVIR SULFATE
  6. DARUNAVIR [Concomitant]
     Active Substance: DARUNAVIR
  7. LASIX [Concomitant]
     Active Substance: FUROSEMIDE
  8. MIRALAX [Concomitant]
     Active Substance: POLYETHYLENE GLYCOL 3350
  9. NYSTATIN. [Concomitant]
     Active Substance: NYSTATIN
  10. DIFLUCAN [Concomitant]
     Active Substance: FLUCONAZOLE
  11. SOLU-MEDROL [Concomitant]
     Active Substance: METHYLPREDNISOLONE SODIUM SUCCINATE
  12. COLACE [Concomitant]
     Active Substance: DOCUSATE SODIUM
  13. SERTRALINE [Concomitant]
     Active Substance: SERTRALINE HYDROCHLORIDE
  14. LAMIVUDINE. [Concomitant]
     Active Substance: LAMIVUDINE
  15. RALTEGRAVIR. [Concomitant]
     Active Substance: RALTEGRAVIR
  16. SIMULECT [Concomitant]
     Active Substance: BASILIXIMAB
  17. BENADRYL [Concomitant]
     Active Substance: DIPHENHYDRAMINE HYDROCHLORIDE

REACTIONS (2)
  - Immunosuppressant drug level increased [Unknown]
  - Off label use [Unknown]

NARRATIVE: CASE EVENT DATE: 20161224
